FAERS Safety Report 10004720 (Version 1)
Quarter: 2014Q1

REPORT INFORMATION
  Report Type: Spontaneous
  Country: CA (occurrence: CA)
  Receive Date: 20140312
  Receipt Date: 20140312
  Transmission Date: 20141002
  Serious: Yes (Other)
  Sender: FDA-Public Use
  Company Number: CA-GLAXOSMITHKLINE-A1063629A

PATIENT
  Age: 69 Year
  Sex: Male

DRUGS (4)
  1. AVODART [Suspect]
     Indication: BENIGN PROSTATIC HYPERPLASIA
     Dosage: .5MG UNKNOWN
     Route: 048
     Dates: start: 20140213, end: 20140224
  2. TERAZOSIN [Concomitant]
     Indication: BENIGN PROSTATIC HYPERPLASIA
     Route: 048
     Dates: start: 20081203
  3. ENALAPRIL [Concomitant]
     Indication: HYPERTENSION
     Route: 048
     Dates: start: 20080827
  4. LORAZEPAM [Concomitant]
     Dosage: 1MG AS REQUIRED
     Dates: start: 20080215

REACTIONS (6)
  - Dysuria [Recovering/Resolving]
  - Pain [Unknown]
  - Catheter placement [Unknown]
  - Bladder pain [Unknown]
  - Genital pain [Unknown]
  - Nocturia [Unknown]
